FAERS Safety Report 9991550 (Version 2)
Quarter: 2014Q2

REPORT INFORMATION
  Report Type: Spontaneous
  Country: JP (occurrence: JP)
  Receive Date: 20140310
  Receipt Date: 20140617
  Transmission Date: 20141212
  Serious: Yes (Other)
  Sender: FDA-Public Use
  Company Number: JP-PFIZER INC-2014063761

PATIENT
  Age: 50 Year
  Sex: Female

DRUGS (2)
  1. VORICONAZOLE [Suspect]
     Indication: PROPHYLAXIS
     Route: 048
  2. MICAFUNGIN [Concomitant]

REACTIONS (1)
  - Zygomycosis [Unknown]
